FAERS Safety Report 12094557 (Version 1)
Quarter: 2016Q1

REPORT INFORMATION
  Report Type: Spontaneous
  Country: US (occurrence: US)
  Receive Date: 20160219
  Receipt Date: 20160219
  Transmission Date: 20160526
  Serious: Yes (Hospitalization)
  Sender: FDA-Public Use
  Company Number: US-INCYTE CORPORATION-2016IN000927

PATIENT
  Age: 68 Year
  Sex: Male

DRUGS (2)
  1. JAKAFI [Suspect]
     Active Substance: RUXOLITINIB
     Indication: MYELOFIBROSIS
     Dosage: 10 MG, BID
     Route: 048
  2. ANAGRELIDE [Concomitant]
     Active Substance: ANAGRELIDE
     Indication: PRODUCT USED FOR UNKNOWN INDICATION

REACTIONS (5)
  - Nausea [Unknown]
  - Wrong technique in product usage process [Unknown]
  - Vomiting [Unknown]
  - Accident [Unknown]
  - Drug dose omission [Unknown]

NARRATIVE: CASE EVENT DATE: 201601
